FAERS Safety Report 14021302 (Version 1)
Quarter: 2017Q3

REPORT INFORMATION
  Report Type: Spontaneous
  Country: US (occurrence: US)
  Receive Date: 20170928
  Receipt Date: 20170928
  Transmission Date: 20171128
  Serious: No
  Sender: FDA-Public Use
  Company Number: US-ROCHE-GNE303179

PATIENT
  Age: 80 Year
  Sex: Female
  Weight: 72.64 kg

DRUGS (6)
  1. AMLODIPINE [Concomitant]
     Active Substance: AMLODIPINE BESYLATE
     Indication: PRODUCT USED FOR UNKNOWN INDICATION
  2. ATENOLOL. [Concomitant]
     Active Substance: ATENOLOL
     Indication: PRODUCT USED FOR UNKNOWN INDICATION
  3. BEPREVE [Concomitant]
     Active Substance: BEPOTASTINE BESILATE
     Indication: PRODUCT USED FOR UNKNOWN INDICATION
  4. CORTICOSTEROID TOPICAL NOS [Concomitant]
     Indication: PRODUCT USED FOR UNKNOWN INDICATION
  5. LUCENTIS [Suspect]
     Active Substance: RANIBIZUMAB
     Indication: AGE-RELATED MACULAR DEGENERATION
     Dosage: UNK
     Route: 031
     Dates: start: 20100607
  6. HCTZ [Concomitant]
     Active Substance: HYDROCHLOROTHIAZIDE
     Indication: PRODUCT USED FOR UNKNOWN INDICATION
     Dosage: 25 MG, UNK
     Route: 065

REACTIONS (13)
  - Diarrhoea [None]
  - Photophobia [None]
  - Musculoskeletal chest pain [None]
  - Fatigue [None]
  - Vision blurred [None]
  - Mydriasis [None]
  - Eye disorder [None]
  - Insomnia [Unknown]
  - Pain in extremity [None]
  - Dysgraphia [None]
  - Musculoskeletal pain [None]
  - Heat illness [None]
  - Arthralgia [None]
